FAERS Safety Report 16013462 (Version 1)
Quarter: 2019Q1

REPORT INFORMATION
  Report Type: Spontaneous
  Country: ES (occurrence: ES)
  Receive Date: 20190227
  Receipt Date: 20190227
  Transmission Date: 20190418
  Serious: Yes (Other)
  Sender: FDA-Public Use
  Company Number: ES-ASTRAZENECA-2019SE28151

PATIENT
  Age: 53 Year
  Sex: Male
  Weight: 98 kg

DRUGS (5)
  1. DAPAGLIFLOZIN. [Suspect]
     Active Substance: DAPAGLIFLOZIN
     Indication: TYPE 2 DIABETES MELLITUS
     Dosage: 1 COMPRIMIDO CADA DIA
     Route: 048
     Dates: start: 20170206
  2. VELMETIA [Concomitant]
     Active Substance: METFORMIN\SITAGLIPTIN
     Indication: TYPE 2 DIABETES MELLITUS
     Dosage: 1 COMPRIMIDO CADA 12 HORAS
     Route: 048
     Dates: start: 20161027
  3. SIMVASTATIN. [Concomitant]
     Active Substance: SIMVASTATIN
     Indication: TYPE V HYPERLIPIDAEMIA
     Dosage: 1 COMPRIMIDO CADA DIA
     Route: 048
     Dates: start: 20180201
  4. OPENVAS [Concomitant]
     Indication: HYPERTENSION
     Dosage: 1 COMPRIMIDO CADA DIA
     Route: 048
     Dates: start: 20161027
  5. ADIRO [Concomitant]
     Active Substance: ASPIRIN
     Indication: TYPE V HYPERLIPIDAEMIA
     Dosage: 1 COMPRIMIDO CADA DIA
     Route: 048
     Dates: start: 20141030

REACTIONS (1)
  - Skin ulcer [Recovering/Resolving]

NARRATIVE: CASE EVENT DATE: 20181228
